FAERS Safety Report 13056471 (Version 1)
Quarter: 2016Q4

REPORT INFORMATION
  Report Type: Spontaneous
  Country: FR (occurrence: FR)
  Receive Date: 20161222
  Receipt Date: 20161222
  Transmission Date: 20170207
  Serious: Yes (Death, Life-Threatening)
  Sender: FDA-Public Use
  Company Number: FR-009507513-1612FRA008714

PATIENT
  Age: 63 Year
  Sex: Male
  Weight: 78.5 kg

DRUGS (9)
  1. LEXOMIL [Concomitant]
     Active Substance: BROMAZEPAM
     Dosage: 1/4 OF TABLET IN THE MORNING
     Route: 048
  2. METFORMIN [Suspect]
     Active Substance: METFORMIN HYDROCHLORIDE
     Indication: TYPE 2 DIABETES MELLITUS
     Dosage: 1 G, 3 PER DAY
     Route: 048
     Dates: end: 20161206
  3. BRILIQUE [Concomitant]
     Active Substance: TICAGRELOR
     Dosage: 2 TABLETS / DAY
     Route: 048
  4. SECTRAL [Concomitant]
     Active Substance: ACEBUTOLOL HYDROCHLORIDE
     Dosage: STRENGTH: 200 (UNITS NOT PROVIDED); 1 TABLET/DAY
     Route: 048
  5. INDAPAMIDE. [Suspect]
     Active Substance: INDAPAMIDE
     Indication: HYPERTENSION
     Dosage: 1 TABLET/DAY
     Dates: end: 20161206
  6. ATORVASTATIN [Concomitant]
     Active Substance: ATORVASTATIN
     Dosage: 1/2 TABLET PER DAY
     Route: 048
  7. KARDEGIC [Concomitant]
     Active Substance: ASPIRIN LYSINE
     Dosage: STRENGTH: 75 (UNITS NOT PROVIDED); 1 SACHET / DAY
  8. COZAAR [Suspect]
     Active Substance: LOSARTAN POTASSIUM
     Indication: HYPERTENSION
     Dosage: 100 MG PER DAY
     Route: 048
     Dates: end: 20161206
  9. INIPOMP [Concomitant]
     Active Substance: PANTOPRAZOLE SODIUM
     Dosage: STRENGTH: 20 (UNITS NOT PROVIDED); 1 TABLET / DAY
     Route: 048

REACTIONS (3)
  - Lactic acidosis [Fatal]
  - Hepatic failure [Not Recovered/Not Resolved]
  - Acute kidney injury [Not Recovered/Not Resolved]

NARRATIVE: CASE EVENT DATE: 20161206
